FAERS Safety Report 8249053-3 (Version None)
Quarter: 2012Q1

REPORT INFORMATION
  Report Type: 
  Country: None (occurrence: None)
  Receive Date: 20120327
  Receipt Date: 20120315
  Transmission Date: 20120608
  Serious: Yes (Hospitalization)
  Sender: FDA-Public Use
  Company Number: DSJ-2012-05193

PATIENT
  Sex: Female

DRUGS (4)
  1. FUROSEMIDE [Concomitant]
  2. SPIRONOLACTONE [Concomitant]
  3. FORMOTEROL/ BUDESONIDE (BUDESONIDE, FORMOTEROL) (BUDESONIDE, FORMOTERO [Concomitant]
  4. AMLODIPINE BESYLATE AND OLMESARTAN MEDOXOMIL [Suspect]
     Indication: HYPERTENSION
     Dosage: 20/5 MG (1 IN 1 D), PER ORAL,  40/10 MG (2 IN 1 D), PER ORAL   20/5 MG (1 IN 1 D), PER ORAL
     Route: 048

REACTIONS (5)
  - RENAL FAILURE [None]
  - RENAL ABSCESS [None]
  - FATIGUE [None]
  - INCORRECT DOSE ADMINISTERED [None]
  - DRUG ADMINISTRATION ERROR [None]
